FAERS Safety Report 10155568 (Version 2)
Quarter: 2014Q2

REPORT INFORMATION
  Report Type: Spontaneous
  Country: FR (occurrence: FR)
  Receive Date: 20140506
  Receipt Date: 20140606
  Transmission Date: 20141212
  Serious: Yes (Other)
  Sender: FDA-Public Use
  Company Number: FR-GLAXOSMITHKLINE-B0990459A

PATIENT
  Age: 28 Year
  Sex: Female

DRUGS (1)
  1. NIQUITIN MINI LOZENGES 4MG [Suspect]
     Indication: EX-TOBACCO USER
     Route: 002
     Dates: start: 2014, end: 2014

REACTIONS (5)
  - Nausea [Recovered/Resolved]
  - Retching [Recovered/Resolved]
  - Dysgeusia [Recovered/Resolved]
  - Ectopic pregnancy [Unknown]
  - Exposure during pregnancy [Unknown]
